FAERS Safety Report 4620210-8 (Version None)
Quarter: 2005Q1

REPORT INFORMATION
  Report Type: 
  Country: None (occurrence: None)
  Receive Date: 20050322
  Receipt Date: 20050322
  Transmission Date: 20050727
  Serious: No
  Sender: FDA-Public Use
  Company Number: None

PATIENT
  Sex: Female

DRUGS (1)
  1. VIOXX [Suspect]
     Indication: SCIATICA
     Dates: start: 20000101

REACTIONS (4)
  - BOWEL MOVEMENT IRREGULARITY [None]
  - CHANGE OF BOWEL HABIT [None]
  - DRUG INEFFECTIVE [None]
  - HAEMORRHAGE [None]
